FAERS Safety Report 21563822 (Version 3)
Quarter: 2022Q4

REPORT INFORMATION
  Report Type: Report from Study
  Country: BR (occurrence: BR)
  Receive Date: 20221108
  Receipt Date: 20221115
  Transmission Date: 20230113
  Serious: Yes (Death, Hospitalization)
  Sender: FDA-Public Use
  Company Number: BR-ABBVIE-4189096

PATIENT
  Age: 79 Year
  Sex: Female
  Weight: 74 kg

DRUGS (1)
  1. HUMIRA [Suspect]
     Active Substance: ADALIMUMAB
     Indication: Rheumatoid arthritis
     Dosage: FORM STRENGTH: 40 MG
     Route: 058
     Dates: start: 20201103

REACTIONS (3)
  - Myocardial infarction [Fatal]
  - Femur fracture [Unknown]
  - Fall [Unknown]

NARRATIVE: CASE EVENT DATE: 20210501
